FAERS Safety Report 6172605-1 (Version None)
Quarter: 2009Q2

REPORT INFORMATION
  Report Type: 
  Country: None (occurrence: None)
  Receive Date: 20090428
  Receipt Date: 20090420
  Transmission Date: 20091009
  Serious: Yes (Hospitalization)
  Sender: FDA-Public Use
  Company Number: TPA2009A00683

PATIENT
  Age: 66 Year
  Sex: Female
  Weight: 47.6 kg

DRUGS (6)
  1. PREVPAC [Suspect]
     Indication: GASTRITIS BACTERIAL
     Dosage: 0.5 CARD, 2 IN 1 D, ORAL
     Route: 048
     Dates: start: 20090414, end: 20090417
  2. ASPIRIN [Concomitant]
  3. LORAZEPAM [Concomitant]
  4. PRAVASTATIN [Concomitant]
  5. METOPROLOL TARTRATE [Concomitant]
  6. MULTIVITAMIN [Concomitant]

REACTIONS (5)
  - CHEST DISCOMFORT [None]
  - DYSPHAGIA [None]
  - HYPOAESTHESIA [None]
  - HYPOAESTHESIA ORAL [None]
  - TINNITUS [None]
